FAERS Safety Report 8006634-X (Version None)
Quarter: 2011Q4

REPORT INFORMATION
  Report Type: 
  Country: None (occurrence: None)
  Receive Date: 20111129
  Receipt Date: 20111115
  Transmission Date: 20120403
  Serious: Yes (Hospitalization)
  Sender: FDA-Public Use
  Company Number: 2011030331

PATIENT
  Sex: Female
  Weight: 65 kg

DRUGS (1)
  1. HIZENTRA [Suspect]
     Indication: IMMUNODEFICIENCY COMMON VARIABLE
     Dosage: (10 G 1X/WEEK SUBCUTANEOUS)
     Route: 058
     Dates: start: 20111110

REACTIONS (3)
  - PYREXIA [None]
  - HEADACHE [None]
  - MUSCULOSKELETAL STIFFNESS [None]
